FAERS Safety Report 25405666 (Version 2)
Quarter: 2025Q2

REPORT INFORMATION
  Report Type: Spontaneous
  Country: MX (occurrence: MX)
  Receive Date: 20250606
  Receipt Date: 20250627
  Transmission Date: 20250716
  Serious: Yes (Hospitalization, Other)
  Sender: SANOFI AVENTIS
  Company Number: MX-SA-2025SA159883

PATIENT
  Age: 43 Year
  Sex: Female

DRUGS (2)
  1. TOUJEO [Suspect]
     Active Substance: INSULIN GLARGINE
     Indication: Diabetes mellitus
     Dosage: 20 IU, QD
     Route: 058
     Dates: start: 20250516
  2. GALACTUS [INSULIN GLARGINE] [Concomitant]
     Indication: Diabetes mellitus
     Dosage: 2 IU OR 4 IU, TID
     Route: 065
     Dates: start: 20250516

REACTIONS (4)
  - Syncope [Recovered/Resolved]
  - Septic shock [Recovered/Resolved]
  - Diabetic ketoacidosis [Recovered/Resolved]
  - Hyperglycaemia [Recovering/Resolving]

NARRATIVE: CASE EVENT DATE: 20250101
